FAERS Safety Report 7105135-0 (Version None)
Quarter: 2010Q4

REPORT INFORMATION
  Report Type: 
  Country: None (occurrence: None)
  Receive Date: 20101116
  Receipt Date: 20101106
  Transmission Date: 20110411
  Serious: Yes (Death, Hospitalization, Other)
  Sender: FDA-Public Use
  Company Number: CA-JNJFOC-20101104537

PATIENT
  Age: 19 Year
  Sex: Female

DRUGS (11)
  1. RISPERIDONE [Suspect]
     Indication: PSYCHOTIC DISORDER
     Route: 065
  2. RISPERIDONE [Suspect]
     Route: 065
  3. RISPERIDONE [Suspect]
     Route: 065
  4. RISPERIDONE [Suspect]
     Route: 065
  5. RISPERIDONE [Suspect]
     Dosage: 1 MG MORNING AND 2 MG BEFORE BED TIME
     Route: 065
  6. OLANZAPINE [Suspect]
     Indication: PSYCHOTIC DISORDER
     Route: 065
  7. OLANZAPINE [Suspect]
     Route: 065
  8. VENLAFAXINE [Suspect]
     Indication: ILL-DEFINED DISORDER
     Route: 065
  9. NORTRIPTYLINE HCL [Suspect]
     Indication: ILL-DEFINED DISORDER
     Route: 065
  10. LOXAPINE [Suspect]
     Indication: ILL-DEFINED DISORDER
     Route: 065
  11. DIPHENHYDRAMINE [Suspect]
     Indication: ILL-DEFINED DISORDER
     Route: 065

REACTIONS (7)
  - DEPRESSIVE SYMPTOM [None]
  - HYPERPROLACTINAEMIA [None]
  - LOSS OF CONSCIOUSNESS [None]
  - PSYCHOTIC DISORDER [None]
  - PULMONARY EMBOLISM [None]
  - SUICIDE ATTEMPT [None]
  - WEIGHT INCREASED [None]
